FAERS Safety Report 5335393-4 (Version None)
Quarter: 2007Q2

REPORT INFORMATION
  Report Type: 
  Country: None (occurrence: None)
  Receive Date: 20070525
  Receipt Date: 20070515
  Transmission Date: 20071010
  Serious: Yes (Other)
  Sender: FDA-Public Use
  Company Number: US-PFIZER INC-2007040012

PATIENT
  Sex: Female
  Weight: 55.8 kg

DRUGS (4)
  1. CHANTIX [Suspect]
     Indication: SMOKING CESSATION THERAPY
  2. PREVACID [Concomitant]
  3. ONE-A-DAY [Concomitant]
  4. CALCIUM CHLORIDE [Concomitant]

REACTIONS (5)
  - BURNING SENSATION [None]
  - DYSURIA [None]
  - FLATULENCE [None]
  - HAEMATURIA [None]
  - NAUSEA [None]
